FAERS Safety Report 9450178 (Version 1)
Quarter: 2013Q3

REPORT INFORMATION
  Report Type: Spontaneous
  Country: FR (occurrence: FR)
  Receive Date: 20130809
  Receipt Date: 20130809
  Transmission Date: 20140515
  Serious: Yes (Hospitalization)
  Sender: FDA-Public Use
  Company Number: FR-JNJFOC-20130800790

PATIENT
  Age: 30 Year
  Sex: Male

DRUGS (10)
  1. XEPLION [Suspect]
     Indication: SCHIZOPHRENIA
     Route: 030
  2. XEPLION [Suspect]
     Indication: SCHIZOPHRENIA
     Route: 030
     Dates: start: 20130424
  3. XEPLION [Suspect]
     Indication: SCHIZOPHRENIA
     Route: 030
     Dates: start: 20130327
  4. XEPLION [Suspect]
     Indication: SCHIZOPHRENIA
     Route: 030
     Dates: start: 20130319
  5. BUPRENORPHINE [Concomitant]
     Route: 065
  6. DEPAKOTE [Concomitant]
     Route: 048
  7. SULFARLEM [Concomitant]
     Route: 065
  8. LEPTICUR [Concomitant]
     Route: 065
  9. DIAZEPAM [Concomitant]
     Dosage: 45 DROPS
     Route: 065
  10. LOXAPAC [Concomitant]
     Dosage: 225 DROPS
     Route: 065

REACTIONS (4)
  - Suicide attempt [Unknown]
  - Delusional disorder, unspecified type [Not Recovered/Not Resolved]
  - Agitation [Not Recovered/Not Resolved]
  - Drug ineffective [Not Recovered/Not Resolved]
